FAERS Safety Report 23988168 (Version 1)
Quarter: 2024Q2

REPORT INFORMATION
  Report Type: Spontaneous
  Country: US (occurrence: US)
  Receive Date: 20240619
  Receipt Date: 20240619
  Transmission Date: 20240716
  Serious: Yes (Other)
  Sender: FDA-Public Use
  Company Number: US-AMGEN-USASP2024116901

PATIENT
  Age: 8 Year
  Sex: Male

DRUGS (4)
  1. ROMIPLOSTIM [Suspect]
     Active Substance: ROMIPLOSTIM
     Indication: Immune thrombocytopenia
     Dosage: UNK
     Route: 065
     Dates: start: 202212
  2. ROMIPLOSTIM [Suspect]
     Active Substance: ROMIPLOSTIM
     Dosage: UNK
     Route: 065
     Dates: end: 202304
  3. RITUXIMAB [Suspect]
     Active Substance: RITUXIMAB
     Indication: Warm autoimmune haemolytic anaemia
     Dosage: UNK
     Route: 065
  4. RITUXIMAB [Suspect]
     Active Substance: RITUXIMAB
     Dosage: UNK, QWK
     Route: 065
     Dates: start: 202304

REACTIONS (9)
  - Warm autoimmune haemolytic anaemia [Unknown]
  - Hypogammaglobulinaemia [Unknown]
  - Immune-mediated cytopenia [Unknown]
  - Thrombocytopenia [Recovered/Resolved]
  - 22q11.2 deletion syndrome [Unknown]
  - Lymphopenia [Unknown]
  - CD4 lymphocytes decreased [Unknown]
  - B-lymphocyte count decreased [Unknown]
  - Off label use [Unknown]

NARRATIVE: CASE EVENT DATE: 20230401
